FAERS Safety Report 22585708 (Version 2)
Quarter: 2023Q2

REPORT INFORMATION
  Report Type: Spontaneous
  Country: US (occurrence: US)
  Receive Date: 20230610
  Receipt Date: 20230615
  Transmission Date: 20230722
  Serious: No
  Sender: FDA-Public Use
  Company Number: US-AMGEN-USASP2023098479

PATIENT
  Age: 78 Year
  Sex: Male
  Weight: 87.982 kg

DRUGS (5)
  1. KYPROLIS [Suspect]
     Active Substance: CARFILZOMIB
     Indication: Plasma cell myeloma
     Dosage: 50 MILLIGRAM (20MG/SQ.METER)
     Route: 042
     Dates: start: 20220323
  2. KYPROLIS [Suspect]
     Active Substance: CARFILZOMIB
     Dosage: 56 MILLIGRAM/SQ. METER (D 1,8,15)
     Route: 042
  3. KYPROLIS [Suspect]
     Active Substance: CARFILZOMIB
     Dosage: 30 MILLIGRAM VIAL
     Route: 065
  4. KYPROLIS [Suspect]
     Active Substance: CARFILZOMIB
     Dosage: 10 MILLIGRAM
     Route: 065
  5. KYPROLIS [Suspect]
     Active Substance: CARFILZOMIB
     Dosage: 10 MILLIGRAM
     Route: 065

REACTIONS (1)
  - Intercepted product preparation error [Unknown]

NARRATIVE: CASE EVENT DATE: 20230607
